FAERS Safety Report 4941722-3 (Version None)
Quarter: 2006Q1

REPORT INFORMATION
  Report Type: 
  Country: None (occurrence: None)
  Receive Date: 20060308
  Receipt Date: 20060224
  Transmission Date: 20060701
  Serious: Yes (Other)
  Sender: FDA-Public Use
  Company Number: 2006028668

PATIENT
  Age: 78 Year
  Sex: Male

DRUGS (7)
  1. LIPITOR [Suspect]
     Indication: BLOOD CHOLESTEROL INCREASED
     Dosage: 10 MG (10 MG, 1 IN 1 D), ORAL
     Route: 048
  2. TIKOSYN [Suspect]
     Indication: HEART RATE IRREGULAR
     Dosage: 250 MG (125 MG, 2 IN 1 D), ORAL
     Route: 048
     Dates: start: 20060201
  3. LISINOPRIL [Concomitant]
  4. TOPROL-XL [Concomitant]
  5. LASIX [Concomitant]
  6. ECOTRIN (ACETYLSALICYLIC ACID) [Concomitant]
  7. ALLOPURINOL [Concomitant]

REACTIONS (9)
  - CARDIAC FAILURE CONGESTIVE [None]
  - DYSPNOEA [None]
  - EMPHYSEMA [None]
  - FLATULENCE [None]
  - GASTROOESOPHAGEAL REFLUX DISEASE [None]
  - HEART RATE IRREGULAR [None]
  - LUNG DISORDER [None]
  - OESOPHAGEAL DISORDER [None]
  - WEIGHT DECREASED [None]
